FAERS Safety Report 25877663 (Version 1)
Quarter: 2025Q4

REPORT INFORMATION
  Report Type: Spontaneous
  Country: EU (occurrence: EU)
  Receive Date: 20251003
  Receipt Date: 20251003
  Transmission Date: 20260118
  Serious: Yes (Hospitalization)
  Sender: ELI LILLY AND COMPANY
  Company Number: None

PATIENT
  Age: 25 Year
  Sex: Female

DRUGS (4)
  1. CYMBALTA [Suspect]
     Active Substance: DULOXETINE HYDROCHLORIDE
     Indication: Intentional overdose
     Dosage: 420 MG, UNKNOWN
     Route: 048
     Dates: start: 20250921, end: 20250921
  2. VALPROATE SODIUM [Suspect]
     Active Substance: VALPROATE SODIUM
     Indication: Intentional overdose
     Dosage: 15 G, UNKNOWN
     Route: 048
     Dates: start: 20250921, end: 20250921
  3. SEROQUEL [Suspect]
     Active Substance: QUETIAPINE FUMARATE
     Indication: Product used for unknown indication
     Dosage: 125 MG, UNKNOWN
     Route: 048
     Dates: start: 20250921, end: 20250921
  4. ZYBAN [Suspect]
     Active Substance: BUPROPION HYDROCHLORIDE
     Indication: Intentional overdose
     Dosage: 1.5 G, UNKNOWN
     Route: 048
     Dates: start: 20250921, end: 20250921

REACTIONS (3)
  - Drug abuse [Not Recovered/Not Resolved]
  - Intentional overdose [Not Recovered/Not Resolved]
  - Somnolence [Not Recovered/Not Resolved]

NARRATIVE: CASE EVENT DATE: 20250921
